FAERS Safety Report 4692192-4 (Version None)
Quarter: 2005Q2

REPORT INFORMATION
  Report Type: 
  Country: None (occurrence: None)
  Receive Date: 20050614
  Receipt Date: 20050601
  Transmission Date: 20051028
  Serious: Yes (Other)
  Sender: FDA-Public Use
  Company Number: 2005084242

PATIENT
  Age: 37 Year
  Sex: Male

DRUGS (13)
  1. SOLU-CORTEF [Suspect]
     Indication: PHARYNX DISCOMFORT
     Dosage: 300 MG, INTRAVENOUS
     Route: 042
     Dates: start: 20041117, end: 20041120
  2. DEXCHLORPHENIRAMINE MALEATE [Concomitant]
  3. MEIACT (CEFDITOREN PIVOXIL) [Concomitant]
  4. SOLETON (ZALTOPROFEN) [Concomitant]
  5. LENDORM [Concomitant]
  6. KENALOG [Concomitant]
  7. PYDOXAL (PYRIDOXAL PHOSPHATE) [Concomitant]
  8. FLAVITAN (FLAVINE ADENINE DINUCLEOTIDE) [Concomitant]
  9. FLUMARIN (FLOMOXEF SODIUM) [Concomitant]
  10. FAMOTIDINE [Concomitant]
  11. PRIMPERAN TAB [Concomitant]
  12. TAKEPRON (LANSOPRAZOLE) [Concomitant]
  13. VITAMINS (VITAMINS) [Concomitant]

REACTIONS (5)
  - ALANINE AMINOTRANSFERASE INCREASED [None]
  - ASPARTATE AMINOTRANSFERASE INCREASED [None]
  - GAMMA-GLUTAMYLTRANSFERASE INCREASED [None]
  - HEPATIC FUNCTION ABNORMAL [None]
  - JAUNDICE [None]
